FAERS Safety Report 6170110-X (Version None)
Quarter: 2009Q2

REPORT INFORMATION
  Report Type: 
  Country: None (occurrence: None)
  Receive Date: 20090428
  Receipt Date: 20090417
  Transmission Date: 20091009
  Serious: Yes (Other)
  Sender: FDA-Public Use
  Company Number: B0571129A

PATIENT
  Sex: Female

DRUGS (3)
  1. SERETIDE [Suspect]
     Dosage: 250UG TWICE PER DAY
     Route: 055
     Dates: start: 20090406, end: 20090412
  2. LEMOCIN [Concomitant]
     Route: 048
  3. PARACETAMOL [Concomitant]
     Route: 048

REACTIONS (2)
  - AGEUSIA [None]
  - ANOSMIA [None]
